FAERS Safety Report 7650567-5 (Version None)
Quarter: 2011Q3

REPORT INFORMATION
  Report Type: 
  Country: None (occurrence: None)
  Receive Date: 20110802
  Receipt Date: 20110726
  Transmission Date: 20111222
  Serious: Yes (Other)
  Sender: FDA-Public Use
  Company Number: JP-ABBOTT-11P-087-0841776-00

PATIENT
  Sex: Male
  Weight: 51.5 kg

DRUGS (11)
  1. NOREPINEPHRINE BITARTRATE [Suspect]
     Indication: BLOOD PRESSURE MANAGEMENT
     Dosage: 20 MCG X 2
     Route: 042
     Dates: start: 20080518, end: 20080518
  2. ISOSORBIDE DINITRATE [Concomitant]
     Indication: BLOOD PRESSURE MANAGEMENT
     Route: 042
     Dates: start: 20080518, end: 20080518
  3. PROPOFOL [Suspect]
     Indication: INDUCTION OF ANAESTHESIA
     Route: 041
     Dates: start: 20080518, end: 20080518
  4. DOPAMINE HCL [Suspect]
     Indication: BLOOD PRESSURE MANAGEMENT
     Dosage: 1-3MCG/KG/MIN
     Route: 042
     Dates: start: 20080518, end: 20080518
  5. ALPROSTADIL [Concomitant]
     Indication: BLOOD PRESSURE MANAGEMENT
     Dosage: 0.02MCG/KG/MIN
     Route: 042
     Dates: start: 20080518, end: 20080518
  6. ROCURONIUM BROMIDE [Concomitant]
     Indication: HYPOTONIA
     Route: 042
     Dates: start: 20080518, end: 20080518
  7. SEVOFLURANE [Suspect]
     Indication: ANAESTHESIA
     Dosage: 0.8-1.5%
     Route: 055
     Dates: start: 20080518, end: 20080518
  8. ROPIVACAINE HYDROCHLORIDE [Suspect]
     Indication: ANAESTHESIA
     Dosage: ED
     Dates: start: 20080518, end: 20080518
  9. FENTANYL CITRATE [Concomitant]
     Indication: ANAESTHESIA
     Dosage: 100MCG X 3
     Route: 042
     Dates: start: 20080518, end: 20080518
  10. DILTIAZEM HCL [Concomitant]
     Indication: BLOOD PRESSURE MANAGEMENT
     Dosage: 0.02MCG/KG/MIN
     Route: 042
     Dates: start: 20080518, end: 20080518
  11. EPHEDEINE HYDROCHLORIDE [Suspect]
     Indication: BLOOD PRESSURE MANAGEMENT
     Dosage: 4MG X 3
     Route: 042
     Dates: start: 20080518, end: 20080518

REACTIONS (1)
  - ARTERIOSPASM CORONARY [None]
